FAERS Safety Report 25691347 (Version 1)
Quarter: 2025Q3

REPORT INFORMATION
  Report Type: Spontaneous
  Country: EU (occurrence: EU)
  Receive Date: 20250818
  Receipt Date: 20250818
  Transmission Date: 20251021
  Serious: Yes (Hospitalization)
  Sender: MYLAN
  Company Number: None

PATIENT
  Age: 73 Year
  Sex: Male
  Weight: 86 kg

DRUGS (12)
  1. KETOPROFEN [Suspect]
     Active Substance: KETOPROFEN
     Indication: Renal colic
     Dosage: 100 MILLIGRAM, BID
     Dates: start: 20240515, end: 20240516
  2. KETOPROFEN [Suspect]
     Active Substance: KETOPROFEN
     Dosage: 100 MILLIGRAM, BID
     Route: 048
     Dates: start: 20240515, end: 20240516
  3. KETOPROFEN [Suspect]
     Active Substance: KETOPROFEN
     Dosage: 100 MILLIGRAM, BID
     Route: 048
     Dates: start: 20240515, end: 20240516
  4. KETOPROFEN [Suspect]
     Active Substance: KETOPROFEN
     Dosage: 100 MILLIGRAM, BID
     Dates: start: 20240515, end: 20240516
  5. TAMSULOSIN HYDROCHLORIDE [Concomitant]
     Active Substance: TAMSULOSIN HYDROCHLORIDE
     Indication: Benign prostatic hyperplasia
     Dosage: 0.4 MILLIGRAM, QD
  6. TAMSULOSIN HYDROCHLORIDE [Concomitant]
     Active Substance: TAMSULOSIN HYDROCHLORIDE
     Dosage: 0.4 MILLIGRAM, QD
     Route: 048
  7. TAMSULOSIN HYDROCHLORIDE [Concomitant]
     Active Substance: TAMSULOSIN HYDROCHLORIDE
     Dosage: 0.4 MILLIGRAM, QD
     Route: 048
  8. TAMSULOSIN HYDROCHLORIDE [Concomitant]
     Active Substance: TAMSULOSIN HYDROCHLORIDE
     Dosage: 0.4 MILLIGRAM, QD
  9. METEOXANE [Concomitant]
     Active Substance: AMOBARBITAL\BELLADONNA LEAF\DIMETHICONE\ERGOTAMINE TARTRATE
     Indication: Renal colic
     Dosage: 1 DOSAGE FORM, BID
  10. METEOXANE [Concomitant]
     Active Substance: AMOBARBITAL\BELLADONNA LEAF\DIMETHICONE\ERGOTAMINE TARTRATE
     Dosage: 1 DOSAGE FORM, BID
     Route: 048
  11. METEOXANE [Concomitant]
     Active Substance: AMOBARBITAL\BELLADONNA LEAF\DIMETHICONE\ERGOTAMINE TARTRATE
     Dosage: 1 DOSAGE FORM, BID
     Route: 048
  12. METEOXANE [Concomitant]
     Active Substance: AMOBARBITAL\BELLADONNA LEAF\DIMETHICONE\ERGOTAMINE TARTRATE
     Dosage: 1 DOSAGE FORM, BID

REACTIONS (2)
  - Urinary tract infection bacterial [Recovered/Resolved]
  - Infection [Recovered/Resolved]

NARRATIVE: CASE EVENT DATE: 20240516
